FAERS Safety Report 5671145-3 (Version None)
Quarter: 2008Q1

REPORT INFORMATION
  Report Type: 
  Country: None (occurrence: None)
  Receive Date: 20080318
  Receipt Date: 20080306
  Transmission Date: 20080703
  Serious: Yes (Hospitalization, Other)
  Sender: FDA-Public Use
  Company Number: US-ELI_LILLY_AND_COMPANY-US200803001348

PATIENT
  Age: 43 Year
  Sex: Female

DRUGS (3)
  1. CYMBALTA [Suspect]
     Indication: PAIN
     Dosage: 30 MG, UNK
     Dates: start: 20070101, end: 20070301
  2. CYMBALTA [Interacting]
     Dosage: 60 MG, UNK
     Dates: start: 20070301, end: 20080101
  3. ALCOHOL [Interacting]

REACTIONS (10)
  - ALANINE AMINOTRANSFERASE INCREASED [None]
  - ANOREXIA [None]
  - ASPARTATE AMINOTRANSFERASE INCREASED [None]
  - DIARRHOEA [None]
  - DRUG INTERACTION [None]
  - FLUID INTAKE REDUCED [None]
  - INFLUENZA LIKE ILLNESS [None]
  - PAIN [None]
  - SLEEP DISORDER [None]
  - VOMITING [None]
